FAERS Safety Report 4913502-6 (Version None)
Quarter: 2006Q1

REPORT INFORMATION
  Report Type: 
  Country: None (occurrence: None)
  Receive Date: 20060216
  Receipt Date: 20060207
  Transmission Date: 20060701
  Serious: Yes (Hospitalization)
  Sender: FDA-Public Use
  Company Number: PHNU2006AU00878

PATIENT
  Sex: Male

DRUGS (1)
  1. LAMISIL [Suspect]
     Indication: ONYCHOMYCOSIS
     Dosage: UNK, UNK
     Route: 048
     Dates: start: 20060101

REACTIONS (4)
  - BLISTER [None]
  - PHOTODERMATOSIS [None]
  - RASH [None]
  - SKIN TEST POSITIVE [None]
